FAERS Safety Report 8230492-1 (Version None)
Quarter: 2012Q1

REPORT INFORMATION
  Report Type: 
  Country: None (occurrence: None)
  Receive Date: 20120323
  Receipt Date: 20120312
  Transmission Date: 20120608
  Serious: Yes (Other)
  Sender: FDA-Public Use
  Company Number: US-PERRIGO-12US000782

PATIENT
  Sex: Female
  Weight: 113.38 kg

DRUGS (1)
  1. BENZOCAINE 20% CRM 142 [Suspect]
     Indication: VULVOVAGINAL PRURITUS
     Dosage: UNKNOWN AMOUNT, ONCE
     Route: 061
     Dates: start: 20120127, end: 20120127

REACTIONS (6)
  - VULVOVAGINAL BURNING SENSATION [None]
  - RASH MACULAR [None]
  - URTICARIA [None]
  - VULVOVAGINAL SWELLING [None]
  - VULVOVAGINAL ERYTHEMA [None]
  - HYPERSENSITIVITY [None]
